FAERS Safety Report 23482357 (Version 2)
Quarter: 2024Q1

REPORT INFORMATION
  Report Type: Spontaneous
  Country: US (occurrence: US)
  Receive Date: 20240205
  Receipt Date: 20240208
  Transmission Date: 20240410
  Serious: No
  Sender: FDA-Public Use
  Company Number: US-BIOGEN-2024BI01248610

PATIENT
  Sex: Female

DRUGS (1)
  1. TYSABRI [Suspect]
     Active Substance: NATALIZUMAB
     Indication: Multiple sclerosis
     Route: 050
     Dates: start: 20190416

REACTIONS (5)
  - Product dose omission issue [Unknown]
  - Visual impairment [Unknown]
  - Hypoaesthesia [Unknown]
  - Aphasia [Unknown]
  - Fatigue [Unknown]
